FAERS Safety Report 17353538 (Version 2)
Quarter: 2020Q3

REPORT INFORMATION
  Report Type: Spontaneous
  Country: US (occurrence: US)
  Receive Date: 20200131
  Receipt Date: 20200827
  Transmission Date: 20201102
  Serious: Yes (Other)
  Sender: FDA-Public Use
  Company Number: US-GILEAD-2020-0448725

PATIENT
  Sex: Female

DRUGS (42)
  1. SUSTIVA [Concomitant]
     Active Substance: EFAVIRENZ
  2. ATORVASTATIN [Concomitant]
     Active Substance: ATORVASTATIN
  3. CLOPIDOGREL [Concomitant]
     Active Substance: CLOPIDOGREL BISULFATE
  4. NITROFURANTOIN. [Concomitant]
     Active Substance: NITROFURANTOIN
  5. BIKTARVY [Concomitant]
     Active Substance: BICTEGRAVIR SODIUM\EMTRICITABINE\TENOFOVIR ALAFENAMIDE FUMARATE
  6. BISACODYL. [Concomitant]
     Active Substance: BISACODYL
  7. CETRIZINE [Concomitant]
     Active Substance: CETIRIZINE HYDROCHLORIDE
  8. DOXYCYCLINE. [Concomitant]
     Active Substance: DOXYCYCLINE
  9. METHOCARBAMOL. [Concomitant]
     Active Substance: METHOCARBAMOL
  10. POTASSIUM [Concomitant]
     Active Substance: POTASSIUM
  11. CEPHALEXINE [Concomitant]
     Active Substance: CEPHALEXIN
  12. OXYCODONE [Concomitant]
     Active Substance: OXYCODONE
  13. SUCRALFATE. [Concomitant]
     Active Substance: SUCRALFATE
  14. VASCEPA [Concomitant]
     Active Substance: ICOSAPENT ETHYL
  15. ATRIPLA [Suspect]
     Active Substance: EFAVIRENZ\EMTRICITABINE\TENOFOVIR DISOPROXIL FUMARATE
     Indication: HIV INFECTION
     Dosage: UNK
     Route: 048
     Dates: start: 2006, end: 201801
  16. DESCOVY [Concomitant]
     Active Substance: EMTRICITABINE\TENOFOVIR ALAFENAMIDE FUMARATE
  17. GABAPENTIN. [Concomitant]
     Active Substance: GABAPENTIN
  18. GAVILYTE ? C [Concomitant]
     Active Substance: POLYETHYLENE GLYCOL 3350\POTASSIUM CHLORIDE\SODIUM BICARBONATE\SODIUM CHLORIDE\SODIUM SULFATE ANHYDROUS
  19. LACTULOSE. [Concomitant]
     Active Substance: LACTULOSE
  20. MELOXICAM. [Concomitant]
     Active Substance: MELOXICAM
  21. METOPROLOL. [Concomitant]
     Active Substance: METOPROLOL
  22. ROSUVASTATIN. [Concomitant]
     Active Substance: ROSUVASTATIN
  23. AMOXICILLIN. [Concomitant]
     Active Substance: AMOXICILLIN
  24. CEFDINIR. [Concomitant]
     Active Substance: CEFDINIR
  25. FERROUS SULFATE. [Concomitant]
     Active Substance: FERROUS SULFATE
  26. FLUCONAZOLE. [Concomitant]
     Active Substance: FLUCONAZOLE
  27. ALBUTEROL HFA [Concomitant]
     Active Substance: ALBUTEROL SULFATE
  28. BANOPHEN [Concomitant]
     Active Substance: DIPHENHYDRAMINE HYDROCHLORIDE
  29. HYDROCODONE [Concomitant]
     Active Substance: HYDROCODONE
  30. LOSARTAN. [Concomitant]
     Active Substance: LOSARTAN
  31. PREDNISONE. [Concomitant]
     Active Substance: PREDNISONE
  32. PROMETHAZINE [Concomitant]
     Active Substance: PROMETHAZINE HYDROCHLORIDE
  33. BASAGLAR [Concomitant]
     Active Substance: INSULIN GLARGINE
  34. FENOFIBRATE. [Concomitant]
     Active Substance: FENOFIBRATE
  35. ONDANSETRON [Concomitant]
     Active Substance: ONDANSETRON
  36. PANTOPRAZOLE [Concomitant]
     Active Substance: PANTOPRAZOLE
  37. SULFAMETHOXAZOL [SULFAMETHOXAZOLE SODIUM] [Concomitant]
  38. FAMOTIDINE. [Concomitant]
     Active Substance: FAMOTIDINE
  39. HUMALOG [Concomitant]
     Active Substance: INSULIN LISPRO
  40. HYDROMORPHONE [Concomitant]
     Active Substance: HYDROMORPHONE
  41. NORTRIPTYLINE [Concomitant]
     Active Substance: NORTRIPTYLINE
  42. TRAMADOL. [Concomitant]
     Active Substance: TRAMADOL

REACTIONS (8)
  - Emotional distress [Not Recovered/Not Resolved]
  - Economic problem [Not Recovered/Not Resolved]
  - Anhedonia [Not Recovered/Not Resolved]
  - Pain [Not Recovered/Not Resolved]
  - Chronic kidney disease [Not Recovered/Not Resolved]
  - Acute kidney injury [Not Recovered/Not Resolved]
  - Osteoporosis [Not Recovered/Not Resolved]
  - Anxiety [Not Recovered/Not Resolved]

NARRATIVE: CASE EVENT DATE: 20170515
